FAERS Safety Report 15652249 (Version 1)
Quarter: 2018Q4

REPORT INFORMATION
  Report Type: Spontaneous
  Country: IT (occurrence: IT)
  Receive Date: 20181123
  Receipt Date: 20181123
  Transmission Date: 20190205
  Serious: Yes (Death, Hospitalization, Other)
  Sender: FDA-Public Use
  Company Number: IT-PFM-2018-13608

PATIENT

DRUGS (1)
  1. VINORELBINE TARTRATE. [Suspect]
     Active Substance: VINORELBINE TARTRATE
     Indication: LUNG ADENOCARCINOMA
     Dosage: DAY 1,8 EVERY 21
     Route: 048
     Dates: start: 2017, end: 201707

REACTIONS (10)
  - Death [Fatal]
  - Neuroendocrine carcinoma of the skin [Unknown]
  - Pneumonia [Unknown]
  - Arrhythmia supraventricular [Unknown]
  - Decreased appetite [Unknown]
  - Hypothyroidism [Unknown]
  - Diarrhoea [Unknown]
  - Constipation [Unknown]
  - Fatigue [Unknown]
  - Cough [Unknown]

NARRATIVE: CASE EVENT DATE: 2017
